FAERS Safety Report 10692816 (Version 1)
Quarter: 2014Q4

REPORT INFORMATION
  Report Type: Spontaneous
  Country: US (occurrence: None)
  Receive Date: 20141223
  Receipt Date: 20141223
  Transmission Date: 20150529
  Serious: Yes (Hospitalization)
  Sender: FDA-Public Use
  Company Number: 407424

PATIENT
  Age: 52 Year
  Sex: Female
  Weight: 92 kg

DRUGS (6)
  1. MAGNESIUM [Concomitant]
     Active Substance: MAGNESIUM
  2. NOVOLIN 70/30 [Suspect]
     Active Substance: INSULIN HUMAN
     Indication: TYPE 2 DIABETES MELLITUS
     Dosage: 25 U IN AM AND 15 U IN PM, QD, SUBCUTANEOUS
     Route: 058
     Dates: start: 2010
  3. CODEINE [Concomitant]
     Active Substance: CODEINE
  4. TRAZODONE [Concomitant]
     Active Substance: TRAZODONE HYDROCHLORIDE
  5. MORPHINE [Concomitant]
     Active Substance: MORPHINE
  6. OMPERAZOLE [Concomitant]
     Active Substance: OMEPRAZOLE

REACTIONS (2)
  - Product quality issue [None]
  - Blood glucose increased [None]

NARRATIVE: CASE EVENT DATE: 201402
